FAERS Safety Report 5827033-2 (Version None)
Quarter: 2008Q3

REPORT INFORMATION
  Report Type: 
  Country: None (occurrence: None)
  Receive Date: 20080724
  Receipt Date: 20080711
  Transmission Date: 20090109
  Serious: Yes (Hospitalization)
  Sender: FDA-Public Use
  Company Number: 230015M07GBR

PATIENT
  Sex: Female

DRUGS (1)
  1. REBIF [Suspect]
     Dosage: 44, 3 IN 1 WEEKS, SUBCUTANEOUS
     Route: 058

REACTIONS (7)
  - CONTUSION [None]
  - HAEMATOMA [None]
  - INJECTION SITE ABSCESS [None]
  - INJECTION SITE CELLULITIS [None]
  - INJECTION SITE PAIN [None]
  - MULTIPLE SCLEROSIS RELAPSE [None]
  - WRONG TECHNIQUE IN DRUG USAGE PROCESS [None]
